FAERS Safety Report 8781340 (Version 1)
Quarter: 2012Q4

REPORT INFORMATION
  Report Type: Report from Study
  Country: US (occurrence: US)
  Receive Date: 20120913
  Receipt Date: 20120913
  Transmission Date: 20130627
  Serious: No
  Sender: FDA-Public Use
  Company Number: US-VERTEX PHARMACEUTICAL INC.-AE-2012-007804

PATIENT
  Age: 53 Year
  Sex: Female
  Weight: 122.92 kg

DRUGS (17)
  1. INCIVEK [Suspect]
     Indication: HEPATITIS C
     Route: 048
     Dates: start: 20120509
  2. RIBAVIRIN [Concomitant]
     Indication: HEPATITIS C
     Route: 048
     Dates: start: 20120509
  3. PEGASYS [Concomitant]
     Indication: HEPATITIS C
     Route: 058
     Dates: start: 20120509
  4. LANTUS INSULIN [Concomitant]
     Indication: DIABETES MELLITUS
     Route: 058
  5. LEVEMIR INSULIN [Concomitant]
     Indication: DIABETES MELLITUS
     Route: 058
  6. LASIX [Concomitant]
  7. OXYCODONE [Concomitant]
  8. MUSCLE RELAXANT [Concomitant]
  9. NITROGLYCERINE [Concomitant]
  10. SYNTHROID [Concomitant]
  11. ATENOLOL [Concomitant]
  12. ALLOPURINOL [Concomitant]
  13. XANAX [Concomitant]
  14. ALBUTEROL INHALER [Concomitant]
  15. NEBULIZER [Concomitant]
  16. POTASSIUM SUPPLEMENT [Concomitant]
  17. FE [Concomitant]

REACTIONS (8)
  - Blood glucose increased [Not Recovered/Not Resolved]
  - Fungal infection [Not Recovered/Not Resolved]
  - Influenza like illness [Not Recovered/Not Resolved]
  - Fatigue [Not Recovered/Not Resolved]
  - Rash [Not Recovered/Not Resolved]
  - Haemorrhoids [Not Recovered/Not Resolved]
  - Vomiting [Not Recovered/Not Resolved]
  - Nausea [Not Recovered/Not Resolved]
